FAERS Safety Report 4357881-X (Version None)
Quarter: 2004Q2

REPORT INFORMATION
  Report Type: 
  Country: None (occurrence: None)
  Receive Date: 20040510
  Receipt Date: 20040422
  Transmission Date: 20050107
  Serious: Yes (Other)
  Sender: FDA-Public Use
  Company Number: DEU-2004-0000815

PATIENT
  Sex: Female

DRUGS (3)
  1. OXYGESIC 10 MG (OXYCODONE HYDROCHLORIDE) CR TABLET [Suspect]
     Indication: PAIN
     Dosage: 10 MB, BID, ORAL; 20 MG, BID, ORAL
     Route: 048
     Dates: start: 20040401, end: 20040404
  2. OXYGESIC 10 MG (OXYCODONE HYDROCHLORIDE) CR TABLET [Suspect]
     Indication: PAIN
     Dosage: 10 MB, BID, ORAL; 20 MG, BID, ORAL
     Route: 048
     Dates: start: 20040405, end: 20040416
  3. MARCUMAR [Concomitant]

REACTIONS (4)
  - BACK DISORDER [None]
  - INTERNATIONAL NORMALISED RATIO DECREASED [None]
  - PAIN [None]
  - PROTHROMBIN TIME SHORTENED [None]
